FAERS Safety Report 5279772-2 (Version None)
Quarter: 2007Q1

REPORT INFORMATION
  Report Type: 
  Country: None (occurrence: None)
  Receive Date: 20061208
  Receipt Date: 20060311
  Transmission Date: 20070707
  Serious: Yes (Other)
  Sender: FDA-Public Use
  Company Number: ENT 2006-0015

PATIENT
  Age: 88 Year
  Sex: Female

DRUGS (3)
  1. COMTAN [Suspect]
     Indication: DYSKINESIA
     Dosage: 600 MG, 3 IN 1 D, ORAL
     Route: 048
     Dates: start: 20051205
  2. SEROQUEL [Concomitant]
  3. SINEMET [Concomitant]

REACTIONS (3)
  - HALLUCINATION [None]
  - HYPOAESTHESIA [None]
  - PARAESTHESIA [None]
